FAERS Safety Report 9705036 (Version 3)
Quarter: 2014Q2

REPORT INFORMATION
  Report Type: Spontaneous
  Country: US (occurrence: US)
  Receive Date: 20131122
  Receipt Date: 20140429
  Transmission Date: 20141212
  Serious: No
  Sender: FDA-Public Use
  Company Number: US-ABBVIE-13P-163-1139446-00

PATIENT
  Age: 74 Year
  Sex: Male
  Weight: 80.81 kg

DRUGS (19)
  1. ANDROGEL 1.62% PUMP [Suspect]
     Indication: HYPOGONADISM
     Dosage: 4 PUMPS
     Route: 062
     Dates: start: 20120529
  2. ANDROGEL 1.62% PUMP [Suspect]
     Indication: BONE DISORDER
     Dosage: 5 PUMPS
  3. ANDROGEL 1% PUMP [Suspect]
     Indication: HYPOGONADISM
     Dosage: 8 PUMPS DAILY
     Route: 062
     Dates: start: 20100116, end: 201108
  4. ANDROGEL 1% PUMP [Suspect]
     Route: 061
     Dates: start: 201108, end: 20120227
  5. ANDROGEL 1% PUMP [Suspect]
     Route: 061
     Dates: start: 20120227, end: 20120529
  6. LIPITOR [Concomitant]
     Indication: BLOOD CHOLESTEROL ABNORMAL
     Route: 048
  7. NIASPAN [Concomitant]
     Indication: BLOOD CHOLESTEROL ABNORMAL
     Route: 048
  8. DOXAZOSIN [Concomitant]
     Indication: PROSTATOMEGALY
     Route: 048
  9. OMEPRAZOLE [Concomitant]
     Indication: GASTROOESOPHAGEAL REFLUX DISEASE
     Route: 048
  10. NASONEX [Concomitant]
     Indication: HYPERSENSITIVITY
  11. ALLEGRA [Concomitant]
     Indication: HYPERSENSITIVITY
     Dosage: AS NEEDED DAILY
     Route: 048
  12. VIAGRA [Concomitant]
     Indication: PRODUCT USED FOR UNKNOWN INDICATION
  13. CIALIS [Concomitant]
     Indication: PRODUCT USED FOR UNKNOWN INDICATION
  14. MULTIVITAMIN [Concomitant]
     Indication: PRODUCT USED FOR UNKNOWN INDICATION
     Route: 048
  15. CITRACAL PLUS D3 [Concomitant]
     Indication: BONE DISORDER
     Dosage: 1 - 1200/1000 D3 TABLET DAILY
     Route: 048
  16. OSTEO BI-FLEX [Concomitant]
     Indication: ARTHRITIS
  17. BENEFIBER [Concomitant]
     Indication: SUPPLEMENTATION THERAPY
  18. BENEFIBER [Concomitant]
     Indication: DIVERTICULUM
  19. FLONASE [Concomitant]
     Indication: INCREASED UPPER AIRWAY SECRETION
     Route: 045

REACTIONS (6)
  - Cerebral cyst [Unknown]
  - Blood testosterone decreased [Not Recovered/Not Resolved]
  - Headache [Not Recovered/Not Resolved]
  - Fatigue [Not Recovered/Not Resolved]
  - Fatigue [Not Recovered/Not Resolved]
  - Asthenia [Unknown]
